FAERS Safety Report 6996844-2 (Version None)
Quarter: 2010Q3

REPORT INFORMATION
  Report Type: 
  Country: None (occurrence: None)
  Receive Date: 20100918
  Receipt Date: 20090710
  Transmission Date: 20110219
  Serious: No
  Sender: FDA-Public Use
  Company Number: US-WYE-H10114509

PATIENT
  Sex: Male

DRUGS (4)
  1. EFFEXOR XR [Suspect]
     Indication: DEPRESSION
     Route: 048
     Dates: start: 20070101, end: 20080101
  2. EFFEXOR XR [Suspect]
     Route: 048
     Dates: start: 20080101, end: 20090601
  3. EFFEXOR XR [Suspect]
     Route: 048
     Dates: start: 20090601
  4. MIRTAZAPINE [Concomitant]

REACTIONS (3)
  - DRUG WITHDRAWAL SYNDROME [None]
  - HICCUPS [None]
  - VOMITING [None]
